FAERS Safety Report 8739923 (Version 3)
Quarter: 2013Q4

REPORT INFORMATION
  Report Type: Spontaneous
  Country: US (occurrence: US)
  Receive Date: 20120823
  Receipt Date: 20131101
  Transmission Date: 20140711
  Serious: No
  Sender: FDA-Public Use
  Company Number: US-009507513-1208USA001102

PATIENT
  Age: 26 Year
  Sex: Female
  Weight: 78.5 kg

DRUGS (1)
  1. IMPLANON [Suspect]
     Indication: CONTRACEPTION
     Dosage: 1 ROD
     Route: 059
     Dates: start: 20110630

REACTIONS (2)
  - Menstruation delayed [Recovered/Resolved]
  - Medical device complication [Unknown]
